FAERS Safety Report 24451605 (Version 1)
Quarter: 2024Q4

REPORT INFORMATION
  Report Type: Report from Study
  Country: IL (occurrence: IL)
  Receive Date: 20241017
  Receipt Date: 20241017
  Transmission Date: 20250115
  Serious: Yes (Other)
  Sender: MERCK KGAA
  Company Number: IL-Merck Healthcare KGaA-2024049805

PATIENT
  Age: 49 Year
  Sex: Female
  Weight: 51 kg

DRUGS (18)
  1. EUTHYROX [Suspect]
     Active Substance: LEVOTHYROXINE SODIUM
     Indication: Hypothyroidism
  2. OMEPRAZOLE [Concomitant]
     Active Substance: OMEPRAZOLE
     Indication: Product used for unknown indication
     Dates: start: 20200510
  3. MILNACIPRAN HYDROCHLORIDE [Concomitant]
     Active Substance: MILNACIPRAN HYDROCHLORIDE
     Indication: Product used for unknown indication
     Dates: start: 20230829
  4. MILNACIPRAN HYDROCHLORIDE [Concomitant]
     Active Substance: MILNACIPRAN HYDROCHLORIDE
     Dates: start: 20230829
  5. CITALOPRAM HYDROBROMIDE [Concomitant]
     Active Substance: CITALOPRAM HYDROBROMIDE
     Indication: Product used for unknown indication
     Dates: start: 20230122
  6. MODAL [Concomitant]
     Indication: Product used for unknown indication
     Dates: start: 20220308
  7. LORAZEPAM [Concomitant]
     Active Substance: LORAZEPAM
     Indication: Product used for unknown indication
     Dates: start: 20180927
  8. MIRABEGRON [Concomitant]
     Active Substance: MIRABEGRON
     Indication: Product used for unknown indication
     Dates: start: 20230704
  9. REXULTI [Concomitant]
     Active Substance: BREXPIPRAZOLE
     Indication: Product used for unknown indication
     Dates: start: 20221212
  10. LIVOSTIN [Concomitant]
     Active Substance: LEVOCABASTINE HYDROCHLORIDE
     Indication: Product used for unknown indication
     Dates: start: 20210426
  11. VITAMIN B12 [Concomitant]
     Active Substance: CYANOCOBALAMIN
     Indication: Product used for unknown indication
  12. PROCTO GLYVENOL [LIDOCAINE HYDROCHLORIDE;TRIBENOSIDE] [Concomitant]
     Indication: Product used for unknown indication
     Dosage: 1 DOSE
  13. SEDURAL [Concomitant]
     Indication: Product used for unknown indication
     Dosage: 30 DOSES
  14. DETHAMYCIN [Concomitant]
     Indication: Product used for unknown indication
     Dosage: EYE PLUS NOSE DROP
  15. FLEET ENEMA [Concomitant]
     Active Substance: SODIUM PHOSPHATE, DIBASIC\SODIUM PHOSPHATE, MONOBASIC
     Indication: Product used for unknown indication
     Dosage: 133 CC
  16. SULFACETAMIDE SODIUM [Concomitant]
     Active Substance: SULFACETAMIDE SODIUM
     Indication: Product used for unknown indication
  17. PROCTO GLYVENOL [LIDOCAINE HYDROCHLORIDE;TRIBENOSIDE] [Concomitant]
     Indication: Product used for unknown indication
     Dosage: BOX X 10 SUP
  18. KAMIL BLUE [Concomitant]
     Indication: Product used for unknown indication
     Dosage: 0X0 PER DAY?CALENDULA DIAPER CR

REACTIONS (13)
  - Loss of consciousness [Unknown]
  - Autoimmune thyroid disorder [Unknown]
  - Pain [Unknown]
  - Fatigue [Unknown]
  - Discomfort [Unknown]
  - Malaise [Unknown]
  - Hypoaesthesia [Unknown]
  - Anxiety [Not Recovered/Not Resolved]
  - Mental disorder [Unknown]
  - Idiopathic urticaria [Unknown]
  - Nausea [Unknown]
  - Palpitations [Unknown]
  - Vomiting [Not Recovered/Not Resolved]
